FAERS Safety Report 24870848 (Version 3)
Quarter: 2025Q2

REPORT INFORMATION
  Report Type: Report from Study
  Country: CA (occurrence: CA)
  Receive Date: 20250121
  Receipt Date: 20250403
  Transmission Date: 20250717
  Serious: Yes (Other)
  Sender: TAKEDA
  Company Number: CA-TAKEDA-2025TUS000602

PATIENT
  Sex: Male

DRUGS (3)
  1. VEDOLIZUMAB [Suspect]
     Active Substance: VEDOLIZUMAB
     Indication: Colitis ulcerative
     Dates: start: 20250103, end: 20250219
  2. MESALAMINE [Concomitant]
     Active Substance: MESALAMINE
  3. Salofalk [Concomitant]

REACTIONS (2)
  - Clostridium difficile infection [Recovering/Resolving]
  - Loss of therapeutic response [Unknown]
